FAERS Safety Report 14840472 (Version 1)
Quarter: 2018Q2

REPORT INFORMATION
  Report Type: Spontaneous
  Country: DE (occurrence: DE)
  Receive Date: 20180503
  Receipt Date: 20180503
  Transmission Date: 20180711
  Serious: Yes (Hospitalization)
  Sender: FDA-Public Use
  Company Number: DE-CONCORDIA PHARMACEUTICALS INC.-E2B_00011521

PATIENT
  Age: 54 Year
  Sex: Female
  Weight: 70 kg

DRUGS (15)
  1. TORASEMID [Concomitant]
     Active Substance: TORSEMIDE
     Dosage: 10 MG, 0-1-0-0, TABLETTEN
     Route: 048
  2. CANDESARTAN. [Concomitant]
     Active Substance: CANDESARTAN
     Dosage: 16 MG, 1-0-0-0, TABLETTEN
     Route: 048
  3. METFORMIN [Concomitant]
     Active Substance: METFORMIN HYDROCHLORIDE
     Dosage: 500 MG, 0-0-1-0, TABLETTEN
     Route: 048
  4. PREDNISOLONE. [Suspect]
     Active Substance: PREDNISOLONE
     Dosage: 5 MG, 1-0-0.5-0, TABLETTEN
     Route: 048
  5. CALCIUM [Concomitant]
     Active Substance: CALCIUM
     Dosage: 1000 MG, 1-0-0-0, BRAUSETABLETTEN
     Route: 048
  6. SPIRIVA 18 MIKROGRAMM [Concomitant]
     Dosage: 18 ?G, 0-1-0-0, DOSIERAEROSOL
     Route: 055
  7. VIANI FORTE 50 UG/500 UG DISKUS [Concomitant]
     Dosage: 50|500 ?G, 1-0-1-0, DOSIERAEROSOL
     Route: 055
  8. JODINAT 200 ?G TABLETTEN [Concomitant]
     Dosage: 200 ?G, 1-0-0-0, TABLETTEN
     Route: 048
  9. CIPRALEX 10MG [Concomitant]
     Dosage: 10 MG, 1-0-0-0, TABLETTEN
     Route: 048
  10. MYCOPHENOLIC ACID. [Suspect]
     Active Substance: MYCOPHENOLIC ACID
     Dosage: 360 MG, 2-0-2-0, TABLETTEN
     Route: 048
  11. PANTOPRAZOL [Concomitant]
     Active Substance: PANTOPRAZOLE SODIUM
     Dosage: 40 MG, 1-0-0-0, TABLETTEN
     Route: 048
  12. COLECALCIFEROL [Concomitant]
     Active Substance: CHOLECALCIFEROL
     Dosage: 1000 IE, 1-0-0-0, TABLETTEN
     Route: 048
  13. AMLODIPINE [Concomitant]
     Active Substance: AMLODIPINE BESYLATE
     Dosage: 5 MG, 0-0-1-0, TABLETTEN
     Route: 048
  14. ATORVASTATIN [Concomitant]
     Active Substance: ATORVASTATIN
     Dosage: 10 MG, 0-0-0-1, TABLETTEN
     Route: 048
  15. SALBUTAMOL [Concomitant]
     Active Substance: ALBUTEROL
     Dosage: BEDARF, DOSIERAEROSOL
     Route: 055

REACTIONS (4)
  - Cough [Unknown]
  - Eosinophilic granulomatosis with polyangiitis [Unknown]
  - Bronchitis [Unknown]
  - Dyspnoea [Unknown]
